FAERS Safety Report 20962595 (Version 7)
Quarter: 2025Q4

REPORT INFORMATION
  Report Type: Report from Study
  Country: CN (occurrence: CN)
  Receive Date: 20220615
  Receipt Date: 20251118
  Transmission Date: 20260117
  Serious: Yes (Other)
  Sender: TAKEDA
  Company Number: CN-TAKEDA-2022TUS019654

PATIENT
  Age: 62 Year
  Sex: Female
  Weight: 45 kg

DRUGS (5)
  1. IXAZOMIB [Suspect]
     Active Substance: IXAZOMIB
     Indication: Plasma cell myeloma refractory
     Dosage: 4 MILLIGRAM, 1/WEEK
     Dates: start: 20211221
  2. AMLODIPINE BESYLATE [Concomitant]
     Active Substance: AMLODIPINE BESYLATE
     Indication: Hypertension
     Dosage: 5 MILLIGRAM, QD
     Dates: start: 2017
  3. LEVOFLOXACIN [Concomitant]
     Active Substance: LEVOFLOXACIN
     Indication: Pneumonia
     Dosage: 0.4 GRAM, QD
     Dates: start: 20220217, end: 2022
  4. Piperacilin tazobactam sala [Concomitant]
     Indication: Pneumonia
     Dosage: 4.5 GRAM
  5. POSACONAZOLE [Concomitant]
     Active Substance: POSACONAZOLE
     Indication: Pneumonia
     Dosage: 5 MILLILITER, TID
     Dates: start: 20220219

REACTIONS (1)
  - Pneumonia [Recovering/Resolving]

NARRATIVE: CASE EVENT DATE: 20230515
